FAERS Safety Report 5684521-X (Version None)
Quarter: 2008Q1

REPORT INFORMATION
  Report Type: 
  Country: None (occurrence: None)
  Receive Date: 20080328
  Receipt Date: 20080318
  Transmission Date: 20080703
  Serious: Yes (Hospitalization, Other)
  Sender: FDA-Public Use
  Company Number: US-ABBOTT-08P-163-0443204-00

PATIENT
  Sex: Female
  Weight: 65 kg

DRUGS (2)
  1. DEPAKOTE [Suspect]
     Indication: CONVULSION
     Route: 048
     Dates: end: 20080312
  2. DEPACON [Suspect]
     Indication: CONVULSION
     Dosage: 500MG/5ML VIAL
     Route: 042
     Dates: start: 20080312

REACTIONS (4)
  - ANTICONVULSANT DRUG LEVEL DECREASED [None]
  - CONVULSION [None]
  - DYSPNOEA [None]
  - HYPERTENSION [None]
